FAERS Safety Report 22213622 (Version 2)
Quarter: 2023Q2

REPORT INFORMATION
  Report Type: Spontaneous
  Country: JP (occurrence: JP)
  Receive Date: 20230414
  Receipt Date: 20230530
  Transmission Date: 20230722
  Serious: Yes (Other)
  Sender: FDA-Public Use
  Company Number: JP-TAKEDA-2023TJP004526AA

PATIENT
  Age: 9 Decade

DRUGS (1)
  1. CABOMETYX [Suspect]
     Active Substance: CABOZANTINIB S-MALATE
     Indication: Hepatocellular carcinoma
     Dosage: 20 MG, QD
     Route: 048
     Dates: start: 20230222

REACTIONS (1)
  - Renal impairment [Not Recovered/Not Resolved]
